FAERS Safety Report 6850776-9 (Version None)
Quarter: 2010Q3

REPORT INFORMATION
  Report Type: 
  Country: None (occurrence: None)
  Receive Date: 20100716
  Receipt Date: 20071023
  Transmission Date: 20110219
  Serious: No
  Sender: FDA-Public Use
  Company Number: US-PFIZER INC-2007090425

PATIENT
  Sex: Female
  Weight: 58.6 kg

DRUGS (3)
  1. CHANTIX [Suspect]
     Indication: SMOKING CESSATION THERAPY
     Dates: start: 20071014, end: 20071023
  2. XANAX [Concomitant]
  3. INDERAL [Concomitant]

REACTIONS (6)
  - CHILLS [None]
  - DECREASED APPETITE [None]
  - MALAISE [None]
  - NAUSEA [None]
  - NERVOUSNESS [None]
  - WEIGHT DECREASED [None]
